FAERS Safety Report 6470622-5 (Version None)
Quarter: 2009Q4

REPORT INFORMATION
  Report Type: 
  Country: None (occurrence: None)
  Receive Date: 20091203
  Receipt Date: 20081212
  Transmission Date: 20100525
  Serious: No
  Sender: FDA-Public Use
  Company Number: US-ABBOTT-08P-163-0493173-00

PATIENT
  Sex: Male
  Weight: 104.42 kg

DRUGS (2)
  1. MERIDIA [Suspect]
     Indication: WEIGHT DECREASED
     Dates: start: 20081201
  2. XANAX [Concomitant]
     Indication: ANXIETY

REACTIONS (3)
  - EJACULATION DISORDER [None]
  - LIBIDO INCREASED [None]
  - VISION BLURRED [None]
